FAERS Safety Report 5950232-6 (Version None)
Quarter: 2008Q4

REPORT INFORMATION
  Report Type: 
  Country: None (occurrence: None)
  Receive Date: 20081112
  Receipt Date: 20081106
  Transmission Date: 20090506
  Serious: Yes (Death, Hospitalization)
  Sender: FDA-Public Use
  Company Number: DE-EISAI MEDICAL RESEARCH-E2020-03652-SPO-DE

PATIENT
  Age: 95 Year
  Sex: Male
  Weight: 73.3 kg

DRUGS (2)
  1. ARICEPT [Suspect]
     Indication: DEMENTIA ALZHEIMER'S TYPE
     Route: 048
     Dates: start: 20070803, end: 20070810
  2. ARICEPT [Suspect]
     Route: 048
     Dates: start: 20070811, end: 20070813

REACTIONS (1)
  - PULMONARY EMBOLISM [None]
